FAERS Safety Report 6914224-2 (Version None)
Quarter: 2010Q3

REPORT INFORMATION
  Report Type: 
  Country: None (occurrence: None)
  Receive Date: 20100809
  Receipt Date: 20100802
  Transmission Date: 20110219
  Serious: Yes (Other)
  Sender: FDA-Public Use
  Company Number: A0861221A

PATIENT
  Age: 80 Year
  Sex: Male

DRUGS (3)
  1. LANOXIN [Suspect]
     Indication: PRODUCT USED FOR UNKNOWN INDICATION
  2. CARVEDILOL [Suspect]
     Indication: BLOOD PRESSURE
     Dosage: 25MG TWICE PER DAY
     Route: 048
  3. OTHER MEDICATIONS [Concomitant]

REACTIONS (3)
  - CARDIOACTIVE DRUG LEVEL INCREASED [None]
  - DRUG INEFFECTIVE [None]
  - DRUG INTERACTION [None]
